FAERS Safety Report 25673820 (Version 1)
Quarter: 2025Q3

REPORT INFORMATION
  Report Type: Spontaneous
  Country: US (occurrence: US)
  Receive Date: 20250813
  Receipt Date: 20250813
  Transmission Date: 20251020
  Serious: Yes (Other)
  Sender: AUROBINDO
  Company Number: US-AUROBINDO-AUR-APL-2025-040710

PATIENT
  Age: 40 Year
  Sex: Male

DRUGS (1)
  1. VORICONAZOLE [Suspect]
     Active Substance: VORICONAZOLE
     Indication: Pseudallescheria infection
     Route: 065

REACTIONS (2)
  - Treatment noncompliance [Unknown]
  - Drug ineffective [Unknown]
